FAERS Safety Report 6566418-6 (Version None)
Quarter: 2010Q1

REPORT INFORMATION
  Report Type: 
  Country: None (occurrence: None)
  Receive Date: 20100202
  Receipt Date: 20100119
  Transmission Date: 20100710
  Serious: Yes (Other)
  Sender: FDA-Public Use
  Company Number: PHHY2010BR05236

PATIENT

DRUGS (1)
  1. EXELON [Suspect]
     Dosage: 9MG/5CM2
     Route: 062

REACTIONS (6)
  - APPLICATION SITE PAIN [None]
  - APPLICATION SITE PRURITUS [None]
  - APPLICATION SITE VESICLES [None]
  - BLISTER [None]
  - OPEN WOUND [None]
  - WOUND COMPLICATION [None]
